FAERS Safety Report 5393403-2 (Version None)
Quarter: 2007Q3

REPORT INFORMATION
  Report Type: 
  Country: None (occurrence: None)
  Receive Date: 20070723
  Receipt Date: 20070710
  Transmission Date: 20080115
  Serious: Yes (Other)
  Sender: FDA-Public Use
  Company Number: ES-BAYER-200714120GDS

PATIENT
  Sex: Female

DRUGS (1)
  1. ACTIRA [Suspect]
     Indication: SINUSITIS
     Route: 065

REACTIONS (2)
  - ATRIOVENTRICULAR BLOCK [None]
  - ELECTROCARDIOGRAM PR PROLONGATION [None]
